FAERS Safety Report 4386409-3 (Version None)
Quarter: 2004Q2

REPORT INFORMATION
  Report Type: 
  Country: None (occurrence: None)
  Receive Date: 20040623
  Receipt Date: 20040608
  Transmission Date: 20050107
  Serious: Yes (Other)
  Sender: FDA-Public Use
  Company Number: 2004215662BR

PATIENT
  Age: 66 Year
  Sex: Male

DRUGS (1)
  1. BEXTRA [Suspect]
     Indication: POSTOPERATIVE CARE
     Dosage: 1 TAB, ORAL
     Route: 048
     Dates: start: 20040522, end: 20040522

REACTIONS (4)
  - DYSPEPSIA [None]
  - FACE OEDEMA [None]
  - POST PROCEDURAL COMPLICATION [None]
  - THROAT TIGHTNESS [None]
